FAERS Safety Report 8985082 (Version 1)
Quarter: 2012Q4

REPORT INFORMATION
  Report Type: Report from Study
  Country: BR (occurrence: BR)
  Receive Date: 20121225
  Receipt Date: 20121225
  Transmission Date: 20130627
  Serious: Yes (Other)
  Sender: FDA-Public Use
  Company Number: BR-AMGEN-BRACT2012082389

PATIENT
  Age: 40 Year
  Sex: Female
  Weight: 80 kg

DRUGS (4)
  1. ETANERCEPT [Suspect]
     Indication: RHEUMATOID ARTHRITIS
     Dosage: 50 mg, 1x/week
     Dates: start: 201101
  2. ETANERCEPT [Suspect]
     Dosage: UNK
     Dates: start: 2012
  3. PREDNISONE [Concomitant]
     Dosage: UNK
  4. ISONIAZID [Concomitant]
     Dosage: UNK

REACTIONS (3)
  - Blood pressure increased [Unknown]
  - Injection site erythema [Unknown]
  - Injection site pruritus [Recovered/Resolved]
